FAERS Safety Report 20188505 (Version 1)
Quarter: 2021Q4

REPORT INFORMATION
  Report Type: Spontaneous
  Country: US (occurrence: None)
  Receive Date: 20211215
  Receipt Date: 20211215
  Transmission Date: 20220303
  Serious: Yes (Hospitalization)
  Sender: FDA-Public Use
  Company Number: None

PATIENT
  Sex: Female

DRUGS (3)
  1. LUPRON DEPOT [Suspect]
     Active Substance: LEUPROLIDE ACETATE
     Indication: Uterine leiomyoma
     Dosage: OTHER FREQUENCY : Q3MO;?
     Route: 030
     Dates: start: 20210916
  2. IBUPROFEN [Concomitant]
     Active Substance: IBUPROFEN
  3. TRAMADOL HCL [Concomitant]
     Active Substance: TRAMADOL HYDROCHLORIDE

REACTIONS (1)
  - Surgery [None]
